FAERS Safety Report 24981274 (Version 1)
Quarter: 2025Q1

REPORT INFORMATION
  Report Type: Spontaneous
  Country: CN (occurrence: CN)
  Receive Date: 20250218
  Receipt Date: 20250218
  Transmission Date: 20250408
  Serious: Yes (Hospitalization, Other)
  Sender: PFIZER
  Company Number: CN-PFIZER INC-PV202500017292

PATIENT
  Age: 74 Year
  Sex: Male
  Weight: 68 kg

DRUGS (3)
  1. EPIRUBICIN HYDROCHLORIDE [Suspect]
     Active Substance: EPIRUBICIN HYDROCHLORIDE
     Indication: Colon cancer
     Dosage: 10 MG, 1X/DAY
     Dates: start: 20250107, end: 20250107
  2. OXALIPLATIN [Suspect]
     Active Substance: OXALIPLATIN
     Indication: Colon cancer
     Dosage: 100 MG, 1X/DAY
     Route: 041
     Dates: start: 20250107, end: 20250107
  3. RALTITREXED [Suspect]
     Active Substance: RALTITREXED
     Indication: Colon cancer
     Dosage: 3 MG, 1X/DAY
     Route: 041
     Dates: start: 20250107, end: 20250107

REACTIONS (2)
  - Hepatic function abnormal [Not Recovered/Not Resolved]
  - Off label use [Unknown]

NARRATIVE: CASE EVENT DATE: 20250107
